FAERS Safety Report 7607192-1 (Version None)
Quarter: 2011Q3

REPORT INFORMATION
  Report Type: 
  Country: None (occurrence: None)
  Receive Date: 20110713
  Receipt Date: 20110708
  Transmission Date: 20111222
  Serious: Yes (Other)
  Sender: FDA-Public Use
  Company Number: DE-AMGEN-DEUSP2011035250

PATIENT
  Sex: Female
  Weight: 60 kg

DRUGS (1)
  1. NPLATE [Suspect]
     Indication: PRODUCT USED FOR UNKNOWN INDICATION
     Dosage: 1 A?G/KG, Q4WK
     Dates: start: 20100101

REACTIONS (2)
  - PLATELET COUNT ABNORMAL [None]
  - THROMBOCYTOSIS [None]
